FAERS Safety Report 5542730-4 (Version None)
Quarter: 2007Q4

REPORT INFORMATION
  Report Type: 
  Country: None (occurrence: None)
  Receive Date: 20071123
  Receipt Date: 20070413
  Transmission Date: 20080405
  Serious: Yes (Other)
  Sender: FDA-Public Use
  Company Number: US-JNJFOC-20070305282

PATIENT
  Age: 69 Year
  Sex: Female

DRUGS (12)
  1. LEVAQUIN [Suspect]
     Indication: BRONCHITIS
     Dosage: 750 MG, 1 IN 1 DAY
     Dates: start: 20070228, end: 20070309
  2. LEVAQUIN [Suspect]
     Indication: CHRONIC OBSTRUCTIVE PULMONARY DISEASE
     Dosage: 750 MG, 1 IN 1 DAY
     Dates: start: 20070228, end: 20070309
  3. STEROIDS (CORTICOSTEROID NOS) [Concomitant]
  4. PREDNISONE [Concomitant]
  5. TYLENOL (CAPLET) [Concomitant]
  6. FLEXORIL (CYCLOBENZAPRINE HYDROCHLORIDE) [Concomitant]
  7. LEXAPRO [Concomitant]
  8. ATENOLOL [Concomitant]
  9. PRILOSEC [Concomitant]
  10. SINGULAIR [Concomitant]
  11. SPIRIVA [Concomitant]
  12. THEOPHYLLINE [Concomitant]

REACTIONS (1)
  - TENDON RUPTURE [None]
